FAERS Safety Report 9198652 (Version 1)
Quarter: 2013Q1

REPORT INFORMATION
  Report Type: Spontaneous
  Country: US (occurrence: US)
  Receive Date: 20130329
  Receipt Date: 20130329
  Transmission Date: 20140127
  Serious: Yes (Hospitalization)
  Sender: FDA-Public Use
  Company Number: US-JNJFOC-20130312142

PATIENT
  Age: 70 Year
  Sex: Male
  Weight: 83.01 kg

DRUGS (2)
  1. XARELTO [Suspect]
     Indication: THROMBOSIS
     Route: 048
     Dates: start: 201302
  2. XARELTO [Suspect]
     Indication: THROMBOSIS
     Route: 048
     Dates: start: 20130115, end: 201302

REACTIONS (4)
  - Local swelling [Recovering/Resolving]
  - Weight decreased [Not Recovered/Not Resolved]
  - Blister [Not Recovered/Not Resolved]
  - Pruritus [Not Recovered/Not Resolved]
